FAERS Safety Report 6194275-9 (Version None)
Quarter: 2009Q2

REPORT INFORMATION
  Report Type: 
  Country: None (occurrence: None)
  Receive Date: 20090514
  Receipt Date: 20090428
  Transmission Date: 20091009
  Serious: Yes (Life-Threatening, Hospitalization, Other)
  Sender: FDA-Public Use
  Company Number: JPI-P-006399

PATIENT
  Age: 32 Year
  Sex: Female

DRUGS (3)
  1. LUVOX [Suspect]
     Indication: DEPRESSION
     Dosage: 25 MG (25 MG, 1 IN 1 D), ORAL
     Route: 048
     Dates: start: 20080425, end: 20080519
  2. ... [Concomitant]
  3. ... [Suspect]

REACTIONS (5)
  - CAESAREAN SECTION [None]
  - CEPHALO-PELVIC DISPROPORTION [None]
  - DRUG EXPOSURE DURING PREGNANCY [None]
  - PLACENTAL INSUFFICIENCY [None]
  - PREMATURE RUPTURE OF MEMBRANES [None]
